FAERS Safety Report 23896076 (Version 1)
Quarter: 2024Q2

REPORT INFORMATION
  Report Type: Spontaneous
  Country: US (occurrence: US)
  Receive Date: 20240524
  Receipt Date: 20240524
  Transmission Date: 20240716
  Serious: Yes (Death)
  Sender: FDA-Public Use
  Company Number: US-PFIZER INC-202400175062

PATIENT
  Age: 84 Year
  Sex: Male
  Weight: 54.43 kg

DRUGS (2)
  1. VYNDAMAX [Suspect]
     Active Substance: TAFAMIDIS
     Indication: Heart rate irregular
     Dosage: UNK
  2. VYNDAMAX [Suspect]
     Active Substance: TAFAMIDIS
     Indication: Cardiac pacemaker insertion

REACTIONS (3)
  - Head and neck cancer [Fatal]
  - Malignant melanoma [Fatal]
  - Bone cancer [Fatal]
